FAERS Safety Report 23186824 (Version 1)
Quarter: 2023Q4

REPORT INFORMATION
  Report Type: Spontaneous
  Country: US (occurrence: US)
  Receive Date: 20231115
  Receipt Date: 20231115
  Transmission Date: 20240110
  Serious: Yes (Life-Threatening, Hospitalization, Other)
  Sender: FDA-Public Use
  Company Number: US-HIKMA PHARMACEUTICALS USA INC.-US-H14001-23-66761

PATIENT
  Age: 48 Year
  Sex: Male
  Weight: 84 kg

DRUGS (101)
  1. FLUOROURACIL [Suspect]
     Active Substance: FLUOROURACIL
     Dosage: 4728 MILLIGRAM
     Route: 042
     Dates: start: 20220718, end: 20220718
  2. FLUOROURACIL [Suspect]
     Active Substance: FLUOROURACIL
     Indication: Colorectal cancer
     Dosage: 5040 MILLIGRAM
     Route: 042
     Dates: start: 20220118, end: 20220118
  3. FLUOROURACIL [Suspect]
     Active Substance: FLUOROURACIL
     Dosage: 5040 MILLIGRAM
     Route: 042
     Dates: start: 20220201, end: 20220201
  4. FLUOROURACIL [Suspect]
     Active Substance: FLUOROURACIL
     Dosage: 5040 MILLIGRAM
     Route: 042
     Dates: start: 20220215, end: 20220215
  5. FLUOROURACIL [Suspect]
     Active Substance: FLUOROURACIL
     Dosage: 5040 MILLIGRAM
     Route: 042
     Dates: start: 20220228, end: 20220228
  6. FLUOROURACIL [Suspect]
     Active Substance: FLUOROURACIL
     Dosage: 5040 MILLIGRAM
     Route: 042
     Dates: start: 20220314, end: 20220314
  7. FLUOROURACIL [Suspect]
     Active Substance: FLUOROURACIL
     Dosage: 5040 MILLIGRAM
     Route: 042
     Dates: start: 20220328, end: 20220328
  8. FLUOROURACIL [Suspect]
     Active Substance: FLUOROURACIL
     Dosage: 5040 MILLIGRAM
     Route: 042
     Dates: start: 20220411, end: 20220411
  9. FLUOROURACIL [Suspect]
     Active Substance: FLUOROURACIL
     Dosage: 5040 MILLIGRAM
     Route: 042
     Dates: start: 20220425, end: 20220425
  10. FLUOROURACIL [Suspect]
     Active Substance: FLUOROURACIL
     Dosage: 5040 MILLIGRAM
     Route: 042
     Dates: start: 20220516, end: 20220516
  11. FLUOROURACIL [Suspect]
     Active Substance: FLUOROURACIL
     Dosage: 5040 MILLIGRAM
     Route: 042
     Dates: start: 20220531, end: 20220531
  12. FLUOROURACIL [Suspect]
     Active Substance: FLUOROURACIL
     Dosage: 5040 MILLIGRAM
     Route: 042
     Dates: start: 20220613, end: 20220613
  13. BEVACIZUMAB [Suspect]
     Active Substance: BEVACIZUMAB
     Indication: Colorectal cancer
     Dosage: 455 MILLIGRAM, SINGLE
     Route: 041
     Dates: start: 20220118, end: 20220118
  14. BEVACIZUMAB [Suspect]
     Active Substance: BEVACIZUMAB
     Dosage: SINGLE
     Route: 041
     Dates: start: 20220201, end: 20220201
  15. BEVACIZUMAB [Suspect]
     Active Substance: BEVACIZUMAB
     Dosage: SINGLE
     Route: 041
     Dates: start: 20220215, end: 20220215
  16. BEVACIZUMAB [Suspect]
     Active Substance: BEVACIZUMAB
     Dosage: SINGLE
     Route: 041
     Dates: start: 20220228, end: 20220228
  17. BEVACIZUMAB [Suspect]
     Active Substance: BEVACIZUMAB
     Dosage: SINGLE
     Route: 041
     Dates: start: 20220314, end: 20220314
  18. BEVACIZUMAB [Suspect]
     Active Substance: BEVACIZUMAB
     Dosage: SINGLE
     Route: 041
     Dates: start: 20220328, end: 20220328
  19. BEVACIZUMAB [Suspect]
     Active Substance: BEVACIZUMAB
     Dosage: SINGLE
     Route: 041
     Dates: start: 20220411, end: 20220411
  20. BEVACIZUMAB [Suspect]
     Active Substance: BEVACIZUMAB
     Dosage: SINGLE
     Route: 041
     Dates: start: 20220425, end: 20220425
  21. BEVACIZUMAB [Suspect]
     Active Substance: BEVACIZUMAB
     Dosage: SINGLE
     Route: 041
     Dates: start: 20220516, end: 20220516
  22. BEVACIZUMAB [Suspect]
     Active Substance: BEVACIZUMAB
     Dosage: SINGLE
     Route: 041
     Dates: start: 20220531, end: 20220531
  23. BEVACIZUMAB [Suspect]
     Active Substance: BEVACIZUMAB
     Dosage: SINGLE
     Route: 041
     Dates: start: 20220613, end: 20220613
  24. ETRUMADENANT [Suspect]
     Active Substance: ETRUMADENANT
     Indication: Colorectal cancer
     Dosage: 150 MILLIGRAM, QD
     Route: 048
     Dates: start: 20220118, end: 20220214
  25. ETRUMADENANT [Suspect]
     Active Substance: ETRUMADENANT
     Dosage: 150 MILLIGRAM, QD
     Route: 048
     Dates: start: 20220223, end: 20220313
  26. ETRUMADENANT [Suspect]
     Active Substance: ETRUMADENANT
     Dosage: 150 MILLIGRAM, QD
     Route: 048
     Dates: start: 20220322, end: 20220410
  27. ETRUMADENANT [Suspect]
     Active Substance: ETRUMADENANT
     Dosage: 150 MILLIGRAM, QD
     Route: 048
     Dates: start: 20220419, end: 20220515
  28. ETRUMADENANT [Suspect]
     Active Substance: ETRUMADENANT
     Dosage: 150 MILLIGRAM, QD
     Route: 048
     Dates: start: 20220524, end: 20220617
  29. ETRUMADENANT [Suspect]
     Active Substance: ETRUMADENANT
     Dosage: 150 MILLIGRAM
     Route: 048
     Dates: start: 20220119, end: 20220214
  30. ETRUMADENANT [Suspect]
     Active Substance: ETRUMADENANT
     Dosage: 150 MILLIGRAM
     Route: 048
     Dates: start: 20220131, end: 20220214
  31. ETRUMADENANT [Suspect]
     Active Substance: ETRUMADENANT
     Dosage: 150 MILLIGRAM
     Route: 048
     Dates: start: 20220201, end: 20220214
  32. ETRUMADENANT [Suspect]
     Active Substance: ETRUMADENANT
     Dosage: 150 MILLIGRAM
     Route: 048
     Dates: start: 20220202, end: 20220214
  33. ETRUMADENANT [Suspect]
     Active Substance: ETRUMADENANT
     Dosage: 150 MILLIGRAM
     Route: 048
     Dates: start: 20220214, end: 20220214
  34. ETRUMADENANT [Suspect]
     Active Substance: ETRUMADENANT
     Dosage: 150 MILLIGRAM
     Route: 048
     Dates: start: 20220215, end: 20230313
  35. ETRUMADENANT [Suspect]
     Active Substance: ETRUMADENANT
     Dosage: 150 MILLIGRAM
     Route: 048
     Dates: start: 20220216, end: 20220313
  36. ETRUMADENANT [Suspect]
     Active Substance: ETRUMADENANT
     Dosage: 150 MILLIGRAM
     Route: 048
     Dates: start: 20220227, end: 20220313
  37. ETRUMADENANT [Suspect]
     Active Substance: ETRUMADENANT
     Dosage: 150 MILLIGRAM
     Route: 048
     Dates: start: 20220228, end: 20220313
  38. ETRUMADENANT [Suspect]
     Active Substance: ETRUMADENANT
     Dosage: 150 MILLIGRAM
     Route: 048
     Dates: start: 20220301, end: 20220313
  39. ETRUMADENANT [Suspect]
     Active Substance: ETRUMADENANT
     Dosage: 150 MILLIGRAM
     Route: 048
     Dates: start: 20220313, end: 20220313
  40. ETRUMADENANT [Suspect]
     Active Substance: ETRUMADENANT
     Dosage: 150 MILLIGRAM
     Route: 048
     Dates: start: 20220314, end: 20220410
  41. ETRUMADENANT [Suspect]
     Active Substance: ETRUMADENANT
     Dosage: 150 MILLIGRAM
     Route: 048
     Dates: start: 20220315, end: 20220410
  42. ETRUMADENANT [Suspect]
     Active Substance: ETRUMADENANT
     Dosage: 150 MILLIGRAM
     Route: 048
     Dates: start: 20220327, end: 20220410
  43. ETRUMADENANT [Suspect]
     Active Substance: ETRUMADENANT
     Dosage: 150 MILLIGRAM
     Route: 048
     Dates: start: 20220328, end: 20220410
  44. ETRUMADENANT [Suspect]
     Active Substance: ETRUMADENANT
     Dosage: 150 MILLIGRAM
     Route: 048
     Dates: start: 20220329, end: 20220410
  45. ETRUMADENANT [Suspect]
     Active Substance: ETRUMADENANT
     Dosage: 150 MILLIGRAM
     Route: 048
     Dates: start: 20220410, end: 20220410
  46. ETRUMADENANT [Suspect]
     Active Substance: ETRUMADENANT
     Dosage: 150 MILLIGRAM
     Route: 048
     Dates: start: 20220411, end: 20220515
  47. ETRUMADENANT [Suspect]
     Active Substance: ETRUMADENANT
     Dosage: 150 MILLIGRAM
     Route: 048
     Dates: start: 20220412, end: 20220515
  48. ETRUMADENANT [Suspect]
     Active Substance: ETRUMADENANT
     Dosage: 150 MILLIGRAM
     Route: 048
     Dates: start: 20220424, end: 20220515
  49. ETRUMADENANT [Suspect]
     Active Substance: ETRUMADENANT
     Dosage: 150 MILLIGRAM
     Route: 048
     Dates: start: 20220425, end: 20220515
  50. ETRUMADENANT [Suspect]
     Active Substance: ETRUMADENANT
     Dosage: 150 MILLIGRAM
     Route: 048
     Dates: start: 20220426, end: 20220515
  51. ETRUMADENANT [Suspect]
     Active Substance: ETRUMADENANT
     Dosage: 150 MILLIGRAM
     Route: 048
     Dates: start: 20220515, end: 20220515
  52. ETRUMADENANT [Suspect]
     Active Substance: ETRUMADENANT
     Dosage: 150 MILLIGRAM
     Route: 048
     Dates: start: 20220516, end: 20220612
  53. ETRUMADENANT [Suspect]
     Active Substance: ETRUMADENANT
     Dosage: 150 MILLIGRAM
     Route: 048
     Dates: start: 20220517, end: 20220612
  54. ETRUMADENANT [Suspect]
     Active Substance: ETRUMADENANT
     Dosage: 150 MILLIGRAM
     Route: 048
     Dates: start: 20220530, end: 20220612
  55. ETRUMADENANT [Suspect]
     Active Substance: ETRUMADENANT
     Dosage: 150 MILLIGRAM
     Route: 048
     Dates: start: 20220531, end: 20220612
  56. ETRUMADENANT [Suspect]
     Active Substance: ETRUMADENANT
     Dosage: 150 MILLIGRAM
     Route: 048
     Dates: start: 20220601, end: 20220612
  57. ETRUMADENANT [Suspect]
     Active Substance: ETRUMADENANT
     Dosage: 150 MILLIGRAM
     Route: 048
     Dates: start: 20220612, end: 20220612
  58. ETRUMADENANT [Suspect]
     Active Substance: ETRUMADENANT
     Dosage: 150 MILLIGRAM
     Route: 048
     Dates: start: 20220613, end: 20220617
  59. ETRUMADENANT [Suspect]
     Active Substance: ETRUMADENANT
     Dosage: 150 MILLIGRAM
     Route: 048
     Dates: start: 20220614, end: 20220617
  60. ETRUMADENANT [Suspect]
     Active Substance: ETRUMADENANT
     Dosage: 150 MILLIGRAM
     Route: 048
     Dates: start: 20220617, end: 20220617
  61. LEUCOVORIN [Suspect]
     Active Substance: LEUCOVORIN\LEUCOVORIN CALCIUM
     Indication: Colorectal cancer
     Dosage: 400 MILLIGRAM
     Route: 042
     Dates: start: 20220118, end: 20220118
  62. LEUCOVORIN [Suspect]
     Active Substance: LEUCOVORIN\LEUCOVORIN CALCIUM
     Dosage: 400 MILLIGRAM
     Route: 042
     Dates: start: 20220201, end: 20220201
  63. LEUCOVORIN [Suspect]
     Active Substance: LEUCOVORIN\LEUCOVORIN CALCIUM
     Dosage: 400 MILLIGRAM
     Route: 042
     Dates: start: 20220215, end: 20220215
  64. LEUCOVORIN [Suspect]
     Active Substance: LEUCOVORIN\LEUCOVORIN CALCIUM
     Dosage: 400 MILLIGRAM
     Route: 042
     Dates: start: 20220228, end: 20220228
  65. LEUCOVORIN [Suspect]
     Active Substance: LEUCOVORIN\LEUCOVORIN CALCIUM
     Dosage: 400 MILLIGRAM
     Route: 042
     Dates: start: 20220314, end: 20220314
  66. LEUCOVORIN [Suspect]
     Active Substance: LEUCOVORIN\LEUCOVORIN CALCIUM
     Dosage: 400 MILLIGRAM
     Route: 042
     Dates: start: 20220328, end: 20220328
  67. LEUCOVORIN [Suspect]
     Active Substance: LEUCOVORIN\LEUCOVORIN CALCIUM
     Dosage: 400 MILLIGRAM
     Route: 042
     Dates: start: 20220411, end: 20220411
  68. LEUCOVORIN [Suspect]
     Active Substance: LEUCOVORIN\LEUCOVORIN CALCIUM
     Dosage: 400 MILLIGRAM
     Route: 042
     Dates: start: 20220425, end: 20220425
  69. LEUCOVORIN [Suspect]
     Active Substance: LEUCOVORIN\LEUCOVORIN CALCIUM
     Dosage: 400 MILLIGRAM
     Route: 042
     Dates: start: 20220516, end: 20220516
  70. LEUCOVORIN [Suspect]
     Active Substance: LEUCOVORIN\LEUCOVORIN CALCIUM
     Dosage: 400 MILLIGRAM
     Route: 042
     Dates: start: 20220531, end: 20220531
  71. LEUCOVORIN [Suspect]
     Active Substance: LEUCOVORIN\LEUCOVORIN CALCIUM
     Dosage: 400 MILLIGRAM
     Route: 042
     Dates: start: 20220613, end: 20220613
  72. LEUCOVORIN [Suspect]
     Active Substance: LEUCOVORIN\LEUCOVORIN CALCIUM
     Dosage: 400 MILLIGRAM
     Route: 042
     Dates: start: 20220718, end: 20220718
  73. OXALIPLATIN [Suspect]
     Active Substance: OXALIPLATIN
     Indication: Colorectal cancer
     Dosage: 179 MILLIGRAM, SINGLE
     Route: 041
     Dates: start: 20220118, end: 20220118
  74. OXALIPLATIN [Suspect]
     Active Substance: OXALIPLATIN
     Dosage: SINGLE
     Route: 041
     Dates: start: 20220201, end: 20220201
  75. OXALIPLATIN [Suspect]
     Active Substance: OXALIPLATIN
     Dosage: SINGLE
     Route: 041
     Dates: start: 20220215, end: 20220215
  76. OXALIPLATIN [Suspect]
     Active Substance: OXALIPLATIN
     Dosage: SINGLE
     Route: 041
     Dates: start: 20220228, end: 20220228
  77. OXALIPLATIN [Suspect]
     Active Substance: OXALIPLATIN
     Dosage: SINGLE
     Route: 041
     Dates: start: 20220314, end: 20220314
  78. OXALIPLATIN [Suspect]
     Active Substance: OXALIPLATIN
     Dosage: SINGLE
     Route: 041
     Dates: start: 20220328, end: 20220328
  79. OXALIPLATIN [Suspect]
     Active Substance: OXALIPLATIN
     Dosage: SINGLE
     Route: 041
     Dates: start: 20220411, end: 20220411
  80. OXALIPLATIN [Suspect]
     Active Substance: OXALIPLATIN
     Dosage: SINGLE
     Route: 041
     Dates: start: 20220425, end: 20220425
  81. OXALIPLATIN [Suspect]
     Active Substance: OXALIPLATIN
     Dosage: SINGLE
     Route: 041
     Dates: start: 20220516, end: 20220516
  82. OXALIPLATIN [Suspect]
     Active Substance: OXALIPLATIN
     Dosage: SINGLE
     Route: 041
     Dates: start: 20220531, end: 20220531
  83. OXALIPLATIN [Suspect]
     Active Substance: OXALIPLATIN
     Dosage: SINGLE
     Route: 041
     Dates: start: 20220613, end: 20220613
  84. ZIMBERELIMAB [Suspect]
     Active Substance: ZIMBERELIMAB
     Indication: Colorectal cancer
     Dosage: 400 MILLIGRAM, SINGLE
     Route: 041
     Dates: start: 20220118, end: 20220118
  85. ZIMBERELIMAB [Suspect]
     Active Substance: ZIMBERELIMAB
     Dosage: SINGLE
     Route: 041
     Dates: start: 20220215, end: 20220215
  86. ZIMBERELIMAB [Suspect]
     Active Substance: ZIMBERELIMAB
     Dosage: SINGLE
     Route: 041
     Dates: start: 20220314, end: 20220314
  87. ZIMBERELIMAB [Suspect]
     Active Substance: ZIMBERELIMAB
     Dosage: SINGLE
     Route: 041
     Dates: start: 20220411, end: 20220411
  88. ZIMBERELIMAB [Suspect]
     Active Substance: ZIMBERELIMAB
     Dosage: SINGLE
     Route: 041
     Dates: start: 20220516, end: 20220516
  89. ZIMBERELIMAB [Suspect]
     Active Substance: ZIMBERELIMAB
     Dosage: SINGLE
     Route: 041
     Dates: start: 20220613, end: 20220613
  90. ACETAMINOPHEN [Concomitant]
     Active Substance: ACETAMINOPHEN
     Indication: Adverse event
     Dosage: UNKNOWN
     Route: 065
     Dates: start: 20220217
  91. DEXAMETHASONE [Concomitant]
     Active Substance: DEXAMETHASONE
     Indication: Prophylaxis
     Dosage: UNKNOWN
     Route: 065
     Dates: start: 20220118
  92. DEXTROSE\SODIUM CHLORIDE [Concomitant]
     Active Substance: DEXTROSE\SODIUM CHLORIDE
     Indication: Premedication
     Dosage: UNKNOWN
     Route: 065
     Dates: start: 20220118
  93. DIPHENHYDRAMINE [Concomitant]
     Active Substance: DIPHENHYDRAMINE
     Indication: Prophylaxis
     Dosage: UNKNOWN
     Route: 065
     Dates: start: 20220215
  94. IBUPROFEN [Concomitant]
     Active Substance: IBUPROFEN
     Indication: Adverse event
     Dosage: UNKNOWN
     Route: 065
     Dates: start: 20220411
  95. LIDOCAINE [Concomitant]
     Active Substance: LIDOCAINE
     Indication: Adverse event
     Dosage: UNKNOWN
     Route: 065
     Dates: start: 20220725, end: 20220727
  96. PLATELETS [Concomitant]
     Active Substance: HUMAN PLATELET, ALLOGENIC
     Indication: Adverse event
     Dosage: UNKNOWN
     Route: 065
     Dates: start: 20220624, end: 20220718
  97. POTASSIUM CHLORIDE [Concomitant]
     Active Substance: POTASSIUM CHLORIDE
     Indication: Prophylaxis
     Dosage: UNKNOWN
     Route: 065
     Dates: start: 20210101
  98. HUMAN RED BLOOD CELL [Concomitant]
     Active Substance: HUMAN RED BLOOD CELL
     Indication: Adverse event
     Dosage: UNKNOWN
     Route: 065
     Dates: start: 20220628, end: 20220628
  99. SODIUM CHLORIDE [Concomitant]
     Active Substance: SODIUM CHLORIDE
     Indication: Premedication
     Dosage: UNKNOWN
     Route: 065
     Dates: start: 20220118
  100. TORADOL [Concomitant]
     Active Substance: KETOROLAC TROMETHAMINE
     Indication: Adverse event
     Dosage: UNKONOWN
     Route: 065
     Dates: start: 20220725, end: 20220727
  101. XARELTO [Concomitant]
     Active Substance: RIVAROXABAN
     Indication: Product used for unknown indication
     Dosage: UNKNOWN
     Route: 065
     Dates: start: 20200701

REACTIONS (11)
  - Thrombocytopenia [Recovering/Resolving]
  - Haemoglobin decreased [Unknown]
  - White blood cell count decreased [Unknown]
  - Red blood cell count decreased [Unknown]
  - Lung hyperinflation [Unknown]
  - Magnetic resonance imaging abdominal abnormal [Unknown]
  - Gingival bleeding [Unknown]
  - Haematochezia [Unknown]
  - Gastrointestinal haemorrhage [Unknown]
  - Blood immunoglobulin M abnormal [Unknown]
  - Toxicity to various agents [Unknown]

NARRATIVE: CASE EVENT DATE: 20220718
